FAERS Safety Report 23856348 (Version 1)
Quarter: 2024Q2

REPORT INFORMATION
  Report Type: Spontaneous
  Country: CA (occurrence: CA)
  Receive Date: 20240515
  Receipt Date: 20240515
  Transmission Date: 20240716
  Serious: Yes (Other)
  Sender: FDA-Public Use
  Company Number: CA-PFIZER INC-202400104077

PATIENT

DRUGS (4)
  1. INFLECTRA [Suspect]
     Active Substance: INFLIXIMAB-DYYB
     Indication: Ankylosing spondylitis
     Dosage: 300 MG, EVERY 6 WEEKS
     Route: 042
     Dates: start: 20240326
  2. INFLECTRA [Suspect]
     Active Substance: INFLIXIMAB-DYYB
     Dosage: 300 MG, EVERY 6 WEEKS
     Route: 042
     Dates: start: 20240507
  3. ATIVAN [Concomitant]
     Active Substance: LORAZEPAM
     Dosage: 1 DF
     Route: 065
  4. REMERON [Concomitant]
     Active Substance: MIRTAZAPINE
     Dosage: 1 DF
     Route: 065

REACTIONS (2)
  - Nephrolithiasis [Recovered/Resolved]
  - Pain [Recovered/Resolved]
